FAERS Safety Report 8877716 (Version 1)
Quarter: 2012Q4

REPORT INFORMATION
  Report Type: Spontaneous
  Country: PL (occurrence: None)
  Receive Date: 20121026
  Receipt Date: 20121026
  Transmission Date: 20130627
  Serious: Yes (Hospitalization)
  Sender: FDA-Public Use
  Company Number: TPA2012A08073

PATIENT
  Age: 57 Year
  Sex: Female

DRUGS (1)
  1. LANSOPRAZOLE [Suspect]
     Indication: CHRONIC DUODENITIS

REACTIONS (2)
  - Cutaneous lupus erythematosus [None]
  - Fatigue [None]
